FAERS Safety Report 17154961 (Version 1)
Quarter: 2019Q4

REPORT INFORMATION
  Report Type: Spontaneous
  Country: DE (occurrence: DE)
  Receive Date: 20191214
  Receipt Date: 20191214
  Transmission Date: 20200122
  Serious: Yes (Other)
  Sender: FDA-Public Use
  Company Number: PHHY2018DE168342

PATIENT
  Sex: Female
  Weight: 53 kg

DRUGS (7)
  1. PROCORALAN [Suspect]
     Active Substance: IVABRADINE
     Indication: PRODUCT USED FOR UNKNOWN INDICATION
     Dosage: 5 MG, BID
     Route: 065
     Dates: end: 20181128
  2. NOVAMINSULFON [Concomitant]
     Active Substance: METAMIZOLE
     Indication: PROCEDURAL PAIN
     Dosage: UNK
     Route: 048
     Dates: start: 201808
  3. PROCORALAN [Suspect]
     Active Substance: IVABRADINE
     Dosage: 7.5 MG, BID
     Route: 065
     Dates: start: 20181129
  4. TORASEMID [Concomitant]
     Active Substance: TORSEMIDE
     Indication: CARDIAC FAILURE
     Dosage: 1 DF, QD
     Route: 048
  5. IBUPROFEN. [Concomitant]
     Active Substance: IBUPROFEN
     Indication: PRODUCT USED FOR UNKNOWN INDICATION
     Dosage: UNK UNK, PRN
     Route: 065
     Dates: start: 20181128
  6. SODIUM CHLORIDE SOLUTION [Concomitant]
     Active Substance: SODIUM CHLORIDE
     Indication: PRODUCT USED FOR UNKNOWN INDICATION
     Dosage: UNK
     Route: 065
  7. ENTRESTO [Suspect]
     Active Substance: SACUBITRIL\VALSARTAN
     Indication: CARDIAC FAILURE
     Dosage: 26 MG, BID (24/26 MG BID)
     Route: 048
     Dates: start: 2018

REACTIONS (6)
  - Osmotic demyelination syndrome [Unknown]
  - Atrial fibrillation [Unknown]
  - Heart rate increased [Unknown]
  - Pollakiuria [Recovered/Resolved]
  - Micturition urgency [Recovered/Resolved]
  - Urine output increased [Not Recovered/Not Resolved]

NARRATIVE: CASE EVENT DATE: 201811
